FAERS Safety Report 13840902 (Version 1)
Quarter: 2017Q3

REPORT INFORMATION
  Report Type: Spontaneous
  Country: ES (occurrence: ES)
  Receive Date: 20170807
  Receipt Date: 20170807
  Transmission Date: 20171127
  Serious: Yes (Other)
  Sender: FDA-Public Use
  Company Number: ES-ELI_LILLY_AND_COMPANY-ES201708000761

PATIENT
  Age: 60 Year
  Sex: Female

DRUGS (1)
  1. ABASAGLAR [Suspect]
     Active Substance: INSULIN GLARGINE
     Indication: DIABETES MELLITUS
     Dosage: 1 DF, EACH MORNING
     Route: 058
     Dates: start: 20170717

REACTIONS (2)
  - Hypoglycaemia [Recovered/Resolved with Sequelae]
  - Inappropriate schedule of drug administration [Recovered/Resolved with Sequelae]

NARRATIVE: CASE EVENT DATE: 20170717
